FAERS Safety Report 23906922 (Version 1)
Quarter: 2024Q2

REPORT INFORMATION
  Report Type: Spontaneous
  Country: US (occurrence: US)
  Receive Date: 20240528
  Receipt Date: 20240528
  Transmission Date: 20240716
  Serious: No
  Sender: FDA-Public Use
  Company Number: US-STERISCIENCE B.V.-2023-ST-002354

PATIENT
  Age: 2 Year
  Sex: Female

DRUGS (6)
  1. AMPICILLIN SODIUM\SULBACTAM SODIUM [Suspect]
     Active Substance: AMPICILLIN SODIUM\SULBACTAM SODIUM
     Indication: Limb discomfort
     Dosage: BIWEEKLY, INTRAVENOUS REGIONAL LIMB PERFUSIONS OF THE LEFT LEG
     Route: 042
  2. AMPICILLIN SODIUM\SULBACTAM SODIUM [Suspect]
     Active Substance: AMPICILLIN SODIUM\SULBACTAM SODIUM
     Indication: Peripheral swelling
  3. AMIKACIN [Concomitant]
     Active Substance: AMIKACIN
     Indication: Limb discomfort
     Dosage: BIWEEKLY, INTRAVENOUS REGIONAL LIMB PERFUSIONS OF THE LEFT LEG
     Route: 042
  4. AMIKACIN [Concomitant]
     Active Substance: AMIKACIN
     Indication: Peripheral swelling
  5. CALCIUM SULFATE [Concomitant]
     Active Substance: CALCIUM SULFATE
     Indication: Limb discomfort
     Dosage: ANTIBIOTIC-IMPREGNATED BEADS
     Route: 065
  6. CALCIUM SULFATE [Concomitant]
     Active Substance: CALCIUM SULFATE
     Indication: Peripheral swelling

REACTIONS (1)
  - Off label use [Unknown]
